FAERS Safety Report 15501157 (Version 1)
Quarter: 2018Q4

REPORT INFORMATION
  Report Type: Report from Study
  Country: US (occurrence: US)
  Receive Date: 20181015
  Receipt Date: 20181015
  Transmission Date: 20190205
  Serious: Yes (Hospitalization, Other)
  Sender: FDA-Public Use
  Company Number: US-SHIRE-US201839254

PATIENT
  Sex: Female
  Weight: 89.8 kg

DRUGS (1)
  1. GATTEX [Suspect]
     Active Substance: TEDUGLUTIDE\WATER
     Indication: SHORT-BOWEL SYNDROME
     Dosage: 0.499 ML, 1X/DAY:QD
     Route: 050

REACTIONS (2)
  - Drug effect increased [Unknown]
  - Renal failure [Unknown]
